FAERS Safety Report 24623145 (Version 1)
Quarter: 2024Q4

REPORT INFORMATION
  Report Type: Spontaneous
  Country: FR (occurrence: FR)
  Receive Date: 20241115
  Receipt Date: 20241115
  Transmission Date: 20250115
  Serious: Yes (Hospitalization)
  Sender: BRISTOL-MYERS SQUIBB COMPANY
  Company Number: None

PATIENT
  Age: 70 Year
  Sex: Male

DRUGS (1)
  1. OPDIVO [Suspect]
     Active Substance: NIVOLUMAB
     Indication: Renal cancer metastatic
     Dates: start: 20220414, end: 20220727

REACTIONS (2)
  - Thyroiditis [Recovered/Resolved with Sequelae]
  - Lung disorder [Recovered/Resolved]

NARRATIVE: CASE EVENT DATE: 20220726
